FAERS Safety Report 16701965 (Version 3)
Quarter: 2019Q4

REPORT INFORMATION
  Report Type: Spontaneous
  Country: JP (occurrence: JP)
  Receive Date: 20190814
  Receipt Date: 20191024
  Transmission Date: 20200122
  Serious: Yes (Hospitalization, Other)
  Sender: FDA-Public Use
  Company Number: JP-ASTRAZENECA-2019SF14541

PATIENT
  Age: 44 Year

DRUGS (2)
  1. FORXIGA [Suspect]
     Active Substance: DAPAGLIFLOZIN
     Indication: DIABETES MELLITUS
     Route: 048
  2. VOGLIBOSE [Concomitant]
     Active Substance: VOGLIBOSE
     Route: 048

REACTIONS (4)
  - Physical deconditioning [Recovered/Resolved]
  - Heat illness [Recovered/Resolved]
  - Abdominal discomfort [Recovered/Resolved]
  - Euglycaemic diabetic ketoacidosis [Recovered/Resolved]
